FAERS Safety Report 25423571 (Version 1)
Quarter: 2025Q2

REPORT INFORMATION
  Report Type: Report from Study
  Country: US (occurrence: US)
  Receive Date: 20250611
  Receipt Date: 20250611
  Transmission Date: 20250717
  Serious: Yes (Death, Hospitalization, Other)
  Sender: SANOFI AVENTIS
  Company Number: US-SANOFI-02507998

PATIENT
  Age: 69 Year
  Sex: Male
  Weight: 63.7 kg

DRUGS (55)
  1. DRONEDARONE [Suspect]
     Active Substance: DRONEDARONE
     Indication: Atrial fibrillation
     Dosage: 400 MG, BID
     Route: 048
     Dates: start: 202406
  2. DRONEDARONE [Suspect]
     Active Substance: DRONEDARONE
     Dosage: 1 DF, BID
     Dates: start: 20241113
  3. PROTONIX [Concomitant]
     Active Substance: PANTOPRAZOLE SODIUM
     Dosage: 1 DF, BID (BY MOUTH)
     Route: 048
     Dates: start: 20250131
  4. TRELEGY ELLIPTA [Concomitant]
     Active Substance: FLUTICASONE FUROATE\UMECLIDINIUM BROMIDE\VILANTEROL TRIFENATATE
  5. DIPHENHYDRAMINE HCL;LIDOCAINE;NYSTATIN [Concomitant]
     Indication: Pain
     Dosage: UNK UNK, Q6H (5-10 ML BY SWISH + SPIT ROUTE EVERY 6 HOURS AS NEEDED FOR PAIN - SWISH + SPIT)
     Dates: start: 20241106
  6. VITAMIN D3 [Concomitant]
     Active Substance: CHOLECALCIFEROL
     Route: 048
  7. DIFLUCAN [Concomitant]
     Active Substance: FLUCONAZOLE
     Dosage: 1 DF, QD (TAKE 1 TAB BY MOUTH DAILY)
     Route: 048
     Dates: start: 20241106
  8. NEURONTIN [Concomitant]
     Active Substance: GABAPENTIN
     Indication: Polyneuropathy idiopathic progressive
     Dosage: 1 DF, QD (TAKE 1 TAB BY MOUTH DAILY AT 6PM)
     Route: 048
  9. NEURONTIN [Concomitant]
     Active Substance: GABAPENTIN
     Dosage: 1 DF, HS (TAKE 1 TABLET (600 MG TOTAL) 90 TABLET 3 BY MOUTH AT BEDTIME DAY)
     Dates: start: 20241016
  10. FERROUS SULFATE [Concomitant]
     Active Substance: FERROUS SULFATE
     Dosage: 28 MG, QD (TAKE 1 TAB BY MOUTH DAILY 28MG)
     Route: 048
  11. LOPRESSOR [Concomitant]
     Active Substance: METOPROLOL TARTRATE
     Dosage: 0.5 DF, BID (TAKE 0.5 TAB BY MOUTH TWO TIMES A DAY)
     Route: 048
     Dates: start: 20240604
  12. ELIQUIS [Concomitant]
     Active Substance: APIXABAN
     Dosage: 1 DF, BID
     Route: 048
     Dates: start: 20240604
  13. CEFATRIZINE PROPYLENE GLYCOLATE [Concomitant]
     Active Substance: CEFATRIZINE PROPYLENE GLYCOLATE
     Dosage: 1 DF, BID
     Route: 048
     Dates: start: 20250105
  14. HABITROL [Concomitant]
     Active Substance: NICOTINE
     Dosage: 1 DF, QD (21 MG/24 HR TRANSDERMAL PATCH 1 PATCH BY TRANSDERMAL ROUTE DAILY)
     Route: 062
     Dates: start: 20241212
  15. NORVASC [Concomitant]
     Active Substance: AMLODIPINE BESYLATE
     Dates: start: 20241120
  16. NORVASC [Concomitant]
     Active Substance: AMLODIPINE BESYLATE
     Dosage: 10 MG, QD (10 MG PER NG/OG TUBE DAILY)
  17. WELLBUTRIN XL [Concomitant]
     Active Substance: BUPROPION HYDROCHLORIDE
     Dosage: 1 DF, QD (TAKE 1 TABLET (150 MG TOTAL) BY MOUTH DAILY)
     Route: 048
  18. DIFLUCAN [Concomitant]
     Active Substance: FLUCONAZOLE
     Route: 048
     Dates: start: 20241230
  19. STRESSTABS [VITAMINS NOS] [Concomitant]
     Dosage: 1 DF, QD (1 TAB DAILY)
  20. NICORETTE [Concomitant]
     Active Substance: NICOTINE
     Dosage: 2 MG, Q2H
     Route: 002
     Dates: start: 20250104
  21. MINERALS\VITAMINS [Concomitant]
     Active Substance: MINERALS\VITAMINS
     Route: 048
  22. ACETAMINOPHEN [Concomitant]
     Active Substance: ACETAMINOPHEN
     Dosage: 1000 MG, TID
  23. AMIODARONE [Concomitant]
     Active Substance: AMIODARONE
     Dosage: 100 MG, QD (100 MG ORAL EVERY 24 HOURS)
     Route: 048
  24. DEXAMETHASONE [Concomitant]
     Active Substance: DEXAMETHASONE
     Dosage: 2 MG, TID (2 MG INTRAVENOUS 3 TIMES PER DAY)
     Route: 042
  25. DEXAMETHASONE [Concomitant]
     Active Substance: DEXAMETHASONE
     Dosage: 2 MG, TID (2 MG INTRAVENOUS EVERY 12 HOURS)
     Route: 042
     Dates: start: 20250217
  26. ALBUTEROL\IPRATROPIUM [Concomitant]
     Active Substance: ALBUTEROL\IPRATROPIUM
     Dosage: 3 ML, Q6H (3 ML INHALATION RT EVERY 6 HOURS)
     Route: 055
  27. LIDOCAINE [Concomitant]
     Active Substance: LIDOCAINE
     Dosage: 2 DF, QD (2 PATCH TRANSDERMAL DAILY)
     Route: 062
  28. METHOCARBAMOL [Concomitant]
     Active Substance: METHOCARBAMOL
     Dosage: 250 MG, QID (250 MG ORAL 4 TIMES PER DAY)
     Route: 048
  29. OLODATEROL\TIOTROPIUM [Concomitant]
     Active Substance: OLODATEROL\TIOTROPIUM
     Dosage: 2 DF, QD (2 PUFF INHALATION RT DAILY)
     Route: 055
  30. MOMETASONE [Concomitant]
     Active Substance: MOMETASONE
     Dosage: 1 DF, BID (1 PUFF INHALATION RT TWO TIMES DAILY)
     Route: 055
  31. POLYETHYLENE GLYCOLS [Concomitant]
     Active Substance: POLYETHYLENE GLYCOLS
     Dosage: 17 G, QD (17 G ORAL DAILY0
     Route: 048
  32. DOCUSATE;SENNA ALEXANDRINA [Concomitant]
     Dosage: 2 DF, QD (2 TABLET ORAL DAILY0
     Route: 048
  33. TERAZOSIN [Concomitant]
     Active Substance: TERAZOSIN HYDROCHLORIDE
     Dosage: 1 MG, HS (1 MG PER NG/OG TUBE NIGHTLY AT BEDTIME0
  34. FERROUS SULFATE [Concomitant]
     Active Substance: FERROUS SULFATE
     Dosage: 1 DF, QOD (TAKE 1 TABLET (325 MG TOTAL) BY MOUTH EVERY MONDAY, WEDNESDAY AND FRIDAY)
  35. ALBUTEROL [Concomitant]
     Active Substance: ALBUTEROL
     Route: 055
     Dates: start: 20250125
  36. GENTLE IRON [ASCORBIC ACID;CYANOCOBALAMIN;FERROUS BISGLYCINATE;FOLIC A [Concomitant]
  37. LIDOCAINE [Concomitant]
     Active Substance: LIDOCAINE
     Dates: start: 20241118
  38. DIPRIVAN [Concomitant]
     Active Substance: PROPOFOL
     Route: 042
     Dates: start: 20250131
  39. PROPOFOL [Concomitant]
     Active Substance: PROPOFOL
     Route: 040
     Dates: start: 20250131
  40. CARDENE [Concomitant]
     Active Substance: NICARDIPINE HYDROCHLORIDE
     Dates: end: 20250131
  41. SODIUM CHLORIDE [Concomitant]
     Active Substance: SODIUM CHLORIDE
     Dates: end: 20250131
  42. SODIUM CHLORIDE [Concomitant]
     Active Substance: SODIUM CHLORIDE
     Dates: start: 20250131
  43. SODIUM CHLORIDE [Concomitant]
     Active Substance: SODIUM CHLORIDE
     Route: 040
     Dates: start: 20250131
  44. DECADRON [Concomitant]
     Active Substance: DEXAMETHASONE
     Route: 042
     Dates: start: 20250131
  45. PROTONIX [Concomitant]
     Active Substance: PANTOPRAZOLE SODIUM
     Route: 042
     Dates: start: 20250131
  46. SUBLIMAZE [Concomitant]
     Active Substance: FENTANYL CITRATE
     Route: 042
     Dates: start: 20250131
  47. ZOFRAN [Concomitant]
     Active Substance: ONDANSETRON HYDROCHLORIDE
     Route: 042
     Dates: start: 20250131
  48. AMIDATE [ETOMIDATE] [Concomitant]
     Route: 042
     Dates: start: 20250131
  49. ZEMURON [Concomitant]
     Active Substance: ROCURONIUM BROMIDE
     Route: 042
     Dates: start: 20250131
  50. OMNIPAQUE [Concomitant]
     Active Substance: IOHEXOL
     Route: 042
     Dates: start: 20250131
  51. KCENTRA [Concomitant]
     Active Substance: COAGULATION FACTOR IX HUMAN\COAGULATION FACTOR VII HUMAN\COAGULATION FACTOR X HUMAN\PROTEIN C\PROTEI
     Route: 042
     Dates: start: 20250131
  52. ADACEL TDAP [Concomitant]
     Active Substance: TETANUS TOXOID, REDUCED DIPHTHERIA TOXOID AND ACELLULAR PERTUSSIS VACCINE ADSORBED, TDAP
     Route: 030
     Dates: start: 20250131
  53. HUMALOG [Concomitant]
     Active Substance: INSULIN LISPRO
     Route: 042
     Dates: start: 20250131
  54. PROVENTIL HFA [Concomitant]
     Active Substance: ALBUTEROL SULFATE
     Dates: start: 20250131
  55. IOHEXOL [Concomitant]
     Active Substance: IOHEXOL
     Route: 042
     Dates: start: 20250131

REACTIONS (5)
  - Death [Fatal]
  - Haemorrhage intracranial [Unknown]
  - Subarachnoid haemorrhage [Unknown]
  - Fall [Unknown]
  - Skin laceration [Unknown]

NARRATIVE: CASE EVENT DATE: 20250131
